FAERS Safety Report 8805290 (Version 1)
Quarter: 2012Q4

REPORT INFORMATION
  Report Type: 
  Country: CN (occurrence: CN)
  Receive Date: 20120924
  Receipt Date: 20120924
  Transmission Date: 20130627
  Serious: Yes (Hospitalization)
  Sender: FDA-Public Use
  Company Number: PHHY2012CN081158

PATIENT
  Age: 24 Year
  Sex: Female

DRUGS (4)
  1. METHYLPREDNISOLONE [Suspect]
     Indication: SYSTEMIC LUPUS ERYTHEMATOSUS
     Dosage: 500 mg, UNK
     Route: 042
  2. METHYLPREDNISOLONE [Suspect]
     Dosage: 160 mg, UNK
     Route: 042
  3. METHYLPREDNISOLONE [Suspect]
     Dosage: 200 mg, UNK
     Route: 042
  4. IMMUNOGLOBULINS [Concomitant]
     Dosage: 0.4 mg/kg, UNK

REACTIONS (13)
  - Systemic lupus erythematosus [Recovered/Resolved]
  - Gastrointestinal motility disorder [Recovered/Resolved]
  - Gastrointestinal hypomotility [Recovered/Resolved]
  - Biliary dilatation [Recovered/Resolved]
  - Hydronephrosis [Recovered/Resolved]
  - Scleral discolouration [Recovered/Resolved]
  - Vomiting [Recovered/Resolved]
  - Constipation [Recovered/Resolved]
  - Abdominal pain [Recovered/Resolved]
  - Blood bilirubin increased [Recovered/Resolved]
  - Bilirubin conjugated increased [Recovered/Resolved]
  - Ascites [Recovered/Resolved]
  - Ureteral disorder [Recovered/Resolved]
